FAERS Safety Report 8202186-X (Version None)
Quarter: 2012Q1

REPORT INFORMATION
  Report Type: 
  Country: None (occurrence: None)
  Receive Date: 20120312
  Receipt Date: 20120302
  Transmission Date: 20120608
  Serious: Yes (Death, Other)
  Sender: FDA-Public Use
  Company Number: US-MPIJNJ-2012-01090

PATIENT
  Sex: Male

DRUGS (1)
  1. VELCADE [Suspect]
     Indication: PERIPHERAL T-CELL LYMPHOMA UNSPECIFIED
     Dosage: 1.6 MG/M2, CYCLIC
     Route: 042
     Dates: start: 20110812, end: 20110916

REACTIONS (3)
  - ABDOMINAL PAIN [None]
  - MYCOSIS FUNGOIDES [None]
  - GASTROINTESTINAL HAEMORRHAGE [None]
